FAERS Safety Report 4605838-3 (Version None)
Quarter: 2005Q1

REPORT INFORMATION
  Report Type: 
  Country: None (occurrence: None)
  Receive Date: 20050214
  Receipt Date: 20041028
  Transmission Date: 20050727
  Serious: No
  Sender: FDA-Public Use
  Company Number: USA041081831

PATIENT
  Age: 70 Year
  Sex: Male
  Weight: 85 kg

DRUGS (6)
  1. CIALIS [Suspect]
     Indication: ERECTILE DYSFUNCTION
     Dosage: 20 MG
     Dates: start: 20041013
  2. LISINOPRIL AND HYDROCHLOROTHIAZIDE [Concomitant]
  3. ZOLOFT [Concomitant]
  4. LESCOL [Concomitant]
  5. RANITIDINE [Concomitant]
  6. CHONDROITIN W/ GLUCOSAMINE [Concomitant]

REACTIONS (9)
  - BACK PAIN [None]
  - BALANCE DISORDER [None]
  - DRUG INEFFECTIVE [None]
  - FALL [None]
  - FEELING ABNORMAL [None]
  - HEADACHE [None]
  - SINUS HEADACHE [None]
  - SOMNOLENCE [None]
  - VERTIGO [None]
